FAERS Safety Report 21597425 (Version 1)
Quarter: 2022Q4

REPORT INFORMATION
  Report Type: Spontaneous
  Country: US (occurrence: US)
  Receive Date: 20221115
  Receipt Date: 20221115
  Transmission Date: 20230113
  Serious: Yes (Other)
  Sender: FDA-Public Use
  Company Number: US-MYLANLABS-2022M1126965

PATIENT
  Age: 73 Year
  Sex: Male

DRUGS (6)
  1. ECONAZOLE [Suspect]
     Active Substance: ECONAZOLE
     Indication: Extramammary Paget^s disease
     Dosage: UNK
     Route: 061
  2. ECONAZOLE [Suspect]
     Active Substance: ECONAZOLE
     Indication: Malignant melanoma in situ
  3. HYDROCORTISONE [Suspect]
     Active Substance: HYDROCORTISONE
     Indication: Extramammary Paget^s disease
     Dosage: UNK
     Route: 061
  4. HYDROCORTISONE [Suspect]
     Active Substance: HYDROCORTISONE
     Indication: Malignant melanoma in situ
  5. CEPHALEXIN [Suspect]
     Active Substance: CEPHALEXIN
     Indication: Extramammary Paget^s disease
     Dosage: UNK
     Route: 048
  6. CEPHALEXIN [Suspect]
     Active Substance: CEPHALEXIN
     Indication: Malignant melanoma in situ

REACTIONS (1)
  - Drug ineffective [Unknown]
